FAERS Safety Report 24533926 (Version 2)
Quarter: 2024Q4

REPORT INFORMATION
  Report Type: Report from Study
  Country: NL (occurrence: NL)
  Receive Date: 20241022
  Receipt Date: 20241029
  Transmission Date: 20250115
  Serious: Yes (Death)
  Sender: MYLAN
  Company Number: NL-MYLANLABS-2024M1094978

PATIENT

DRUGS (3)
  1. MYCOPHENOLIC ACID [Suspect]
     Active Substance: MYCOPHENOLIC ACID
     Indication: Prophylaxis against graft versus host disease
     Dosage: 15 MILLIGRAM/KILOGRAM, 3?TIMES/DAY FROM DAY?5 TO DAY?28 POST-TRANSPLANT
     Route: 065
  2. TACROLIMUS [Suspect]
     Active Substance: TACROLIMUS
     Indication: Prophylaxis against graft versus host disease
     Dosage: 0.04 MILLIGRAM/KILOGRAM, BID, FROM DAY 5 POST-TRANSPLANT
     Route: 065
  3. CYCLOPHOSPHAMIDE [Suspect]
     Active Substance: CYCLOPHOSPHAMIDE
     Indication: Prophylaxis against graft versus host disease
     Dosage: 40 MILLIGRAM/KILOGRAM
     Route: 065

REACTIONS (1)
  - Drug ineffective [Fatal]
